FAERS Safety Report 6774507-6 (Version None)
Quarter: 2010Q2

REPORT INFORMATION
  Report Type: 
  Country: None (occurrence: None)
  Receive Date: 20100617
  Receipt Date: 20100609
  Transmission Date: 20101027
  Serious: Yes (Other)
  Sender: FDA-Public Use
  Company Number: PHHY2010AR37523

PATIENT
  Sex: Male

DRUGS (2)
  1. RASILEZ [Suspect]
     Dosage: 150 MG
  2. LOSARTAN POTASSIUM [Concomitant]
     Dosage: 50MG

REACTIONS (1)
  - ERYTHEMA [None]
